FAERS Safety Report 10641783 (Version 2)
Quarter: 2014Q4

REPORT INFORMATION
  Report Type: Spontaneous
  Country: GB (occurrence: GB)
  Receive Date: 20141209
  Receipt Date: 20141209
  Transmission Date: 20150529
  Serious: Yes (Other)
  Sender: FDA-Public Use
  Company Number: GB-BAXTER-2014BAX061925

PATIENT
  Age: 32 Year
  Sex: Female
  Weight: 86.4 kg

DRUGS (12)
  1. IDARUBICIN [Suspect]
     Active Substance: IDARUBICIN
     Indication: ACUTE PROMYELOCYTIC LEUKAEMIA
     Route: 065
     Dates: start: 201002
  2. IDARUBICIN [Suspect]
     Active Substance: IDARUBICIN
     Indication: LEUKAEMIA RECURRENT
     Route: 065
     Dates: start: 201309
  3. TRISENOX [Suspect]
     Active Substance: ARSENIC TRIOXIDE
     Indication: ACUTE PROMYELOCYTIC LEUKAEMIA
     Dosage: WEEK 1, FOR 5 DAYS
     Route: 065
     Dates: start: 2013
  4. TRISENOX [Suspect]
     Active Substance: ARSENIC TRIOXIDE
     Indication: LEUKAEMIA RECURRENT
     Dosage: WEEK 2-4
     Route: 065
     Dates: start: 2013
  5. CYCLOPHOSPHAMIDE INJECTION 1G [Suspect]
     Active Substance: CYCLOPHOSPHAMIDE
     Indication: LEUKAEMIA RECURRENT
  6. MYLOTARG [Suspect]
     Active Substance: GEMTUZUMAB OZOGAMICIN
     Indication: LEUKAEMIA RECURRENT
     Route: 065
     Dates: start: 201309
  7. THIOTEPA. [Suspect]
     Active Substance: THIOTEPA
     Indication: LEUKAEMIA RECURRENT
     Route: 065
     Dates: start: 201212
  8. MITOXANTRONE [Suspect]
     Active Substance: MITOXANTRONE HYDROCHLORIDE
     Indication: ACUTE PROMYELOCYTIC LEUKAEMIA
     Route: 065
     Dates: start: 201002
  9. CYCLOPHOSPHAMIDE INJECTION 1G [Suspect]
     Active Substance: CYCLOPHOSPHAMIDE
     Indication: ACUTE PROMYELOCYTIC LEUKAEMIA
     Route: 065
     Dates: start: 201212
  10. BUSULPHAN [Suspect]
     Active Substance: BUSULFAN
     Indication: LEUKAEMIA RECURRENT
     Route: 065
     Dates: start: 201212
  11. ATRA [Suspect]
     Active Substance: TRETINOIN
     Indication: LEUKAEMIA RECURRENT
     Route: 065
     Dates: start: 201309
  12. ATRA [Suspect]
     Active Substance: TRETINOIN
     Indication: ACUTE PROMYELOCYTIC LEUKAEMIA
     Route: 065
     Dates: start: 201002

REACTIONS (2)
  - Leukaemia recurrent [Unknown]
  - Lower respiratory tract infection fungal [Unknown]

NARRATIVE: CASE EVENT DATE: 201309
